FAERS Safety Report 4652821-8 (Version None)
Quarter: 2005Q3

REPORT INFORMATION
  Report Type: 
  Country: None (occurrence: None)
  Receive Date: 20050428
  Receipt Date: 20050401
  Transmission Date: 20060218
  Serious: Yes (Other)
  Sender: FDA-Public Use
  Company Number: 200410145BBE

PATIENT
  Sex: Male

DRUGS (34)
  1. GAMIMUNE N 10% [Suspect]
     Indication: HYPOGAMMAGLOBULINAEMIA
     Dosage: GAMIMUNE N, 10%
  2. GAMIMUNE N 10% [Suspect]
  3. GAMIMUNE N 10% [Suspect]
  4. GAMIMUNE N 10% [Suspect]
  5. GAMIMUNE N 10% [Suspect]
  6. GAMIMUNE N 10% [Suspect]
  7. GAMIMUNE N 10% [Suspect]
  8. GAMIMUNE N 10% [Suspect]
  9. GAMIMUNE N 10% [Suspect]
  10. GAMIMUNE N 10% [Suspect]
  11. GAMIMUNE N 10% [Suspect]
  12. GAMIMUNE N 10% [Suspect]
  13. GAMIMUNE N 10% [Suspect]
  14. GAMIMUNE N 10% [Suspect]
  15. GAMIMUNE N 10% [Suspect]
  16. BENZODIAZEPINE [Concomitant]
  17. OPIATES [Concomitant]
  18. BARBITURATES [Concomitant]
  19. TICYCLIC ANTIDEPRESSANTS [Concomitant]
  20. NEURONTIN [Concomitant]
  21. ZOSYN [Concomitant]
  22. VANCOMYCIN [Concomitant]
  23. DIFLUCAN [Concomitant]
  24. COMBIVENT [Concomitant]
  25. BACTROBAN [Concomitant]
  26. AFRIN [Concomitant]
  27. MS CONTIN [Concomitant]
  28. VALIUM [Concomitant]
  29. SOMA [Concomitant]
  30. ALLEGRA [Concomitant]
  31. PREVACID [Concomitant]
  32. LOPRESSOR [Concomitant]
  33. ADVAIR DISKUS 100/50 [Concomitant]
  34. CARAFATE [Concomitant]

REACTIONS (2)
  - HEPATITIS B [None]
  - HEPATITIS C [None]
